FAERS Safety Report 23501273 (Version 3)
Quarter: 2024Q1

REPORT INFORMATION
  Report Type: Other
  Country: CA (occurrence: None)
  Receive Date: 20240208
  Receipt Date: 20240319
  Transmission Date: 20240409
  Serious: Yes (Hospitalization)
  Sender: FDA-Public Use
  Company Number: CA-ROCHE-3503910

PATIENT
  Sex: Male

DRUGS (3)
  1. OCREVUS [Suspect]
     Active Substance: OCRELIZUMAB
     Indication: Relapsing-remitting multiple sclerosis
     Dosage: 300 MG (CONCENTRATE FOR INTRAVENOUS INFUSION) AT DAY 0 AND 14, THEN 600 MG EVERY 6 MONTHS
     Route: 042
     Dates: start: 20180118
  2. AMLODIPINE [Concomitant]
     Active Substance: AMLODIPINE BESYLATE
     Indication: Blood pressure measurement
  3. OMEGA 3 [Concomitant]
     Active Substance: CAPSAICIN

REACTIONS (8)
  - Skin infection [Unknown]
  - Clostridium difficile infection [Unknown]
  - Erectile dysfunction [Unknown]
  - Muscle spasticity [Unknown]
  - Depression [Unknown]
  - Urinary retention [Unknown]
  - Prostatic hypoplasia [Unknown]
  - Bladder spasm [Unknown]
